FAERS Safety Report 23381913 (Version 4)
Quarter: 2024Q1

REPORT INFORMATION
  Report Type: Spontaneous
  Country: CA (occurrence: CA)
  Receive Date: 20240109
  Receipt Date: 20240328
  Transmission Date: 20240410
  Serious: Yes (Other)
  Sender: FDA-Public Use
  Company Number: CA-CELLTRION INC.-2023CA025354

PATIENT

DRUGS (23)
  1. INFLECTRA [Suspect]
     Active Substance: INFLIXIMAB-DYYB
     Indication: Ankylosing spondylitis
     Dosage: 500 MG, 0, 2, 6 THEN EVERY 8 WEEKS
     Route: 042
     Dates: start: 20190318, end: 20190819
  2. INFLECTRA [Suspect]
     Active Substance: INFLIXIMAB-DYYB
     Dosage: 500 MG, EVERY 6 WEEKS
     Route: 042
     Dates: start: 20191007
  3. INFLECTRA [Suspect]
     Active Substance: INFLIXIMAB-DYYB
     Dosage: 500 MG, EVERY 6 WEEKS
     Route: 042
     Dates: start: 20231227
  4. INFLECTRA [Suspect]
     Active Substance: INFLIXIMAB-DYYB
     Dosage: 500 MG, EVERY 6 WEEKS
     Route: 042
     Dates: start: 20240207
  5. INFLECTRA [Suspect]
     Active Substance: INFLIXIMAB-DYYB
     Dosage: 500 MG, EVERY 6 WEEKS
     Route: 042
     Dates: start: 20240320
  6. BRICANYL [Concomitant]
     Active Substance: TERBUTALINE SULFATE
     Dosage: UNK
  7. CELEBREX [Concomitant]
     Active Substance: CELECOXIB
     Dosage: UNK
  8. CEFIXIME [Concomitant]
     Active Substance: CEFIXIME
     Dosage: UNK
  9. FLUCONAZOLE [Concomitant]
     Active Substance: FLUCONAZOLE
     Indication: Fungal infection
     Dosage: 1 DF
  10. HYDROMORPHONE [Concomitant]
     Active Substance: HYDROMORPHONE
     Dosage: UNK
  11. LOSARTAN [Concomitant]
     Active Substance: LOSARTAN
     Dosage: UNK
  12. MARVELON [Concomitant]
     Active Substance: DESOGESTREL\ETHINYL ESTRADIOL
     Dosage: UNK
  13. MAXALT [Concomitant]
     Active Substance: RIZATRIPTAN BENZOATE
     Dosage: UNK
  14. MELATONIN [Concomitant]
     Active Substance: MELATONIN
     Dosage: UNK
  15. METHOTREXATE [Concomitant]
     Active Substance: METHOTREXATE
     Dosage: 1 DF, INCREASED FORM 0.6 TO 0.8 MG. FREQUENCY UNKNOWN
     Route: 065
  16. NASONEX [Concomitant]
     Active Substance: MOMETASONE FUROATE
     Dosage: UNK
  17. NORVASC [Concomitant]
     Active Substance: AMLODIPINE BESYLATE
     Dosage: UNK
  18. NYSTATIN [Concomitant]
     Active Substance: NYSTATIN
     Indication: Fungal infection
     Dosage: 1 DF, DOSAGE INFORMATION NOT AVAILABLE
  19. PULMICORT TURBUHALER [Concomitant]
     Active Substance: BUDESONIDE
     Dosage: UNK
  20. PREDNISONE [Concomitant]
     Active Substance: PREDNISONE
     Dosage: 1 DF, 1X/DAY, STARTED ON 50 MG DOWN TO 15 MG NOW
     Route: 065
  21. RABEPRAZOLE [Concomitant]
     Active Substance: RABEPRAZOLE
     Dosage: UNK
  22. SERTRALINE [Concomitant]
     Active Substance: SERTRALINE HYDROCHLORIDE
     Dosage: UNK
  23. ZOPICLONE [Concomitant]
     Active Substance: ZOPICLONE
     Dosage: UNK

REACTIONS (8)
  - Poor venous access [Unknown]
  - Vein disorder [Unknown]
  - Unresponsive to stimuli [Recovered/Resolved]
  - Epistaxis [Recovered/Resolved]
  - Hypertension [Recovered/Resolved]
  - Neck pain [Recovered/Resolved]
  - Arthralgia [Recovered/Resolved]
  - Off label use [Unknown]

NARRATIVE: CASE EVENT DATE: 20231228
